FAERS Safety Report 6317050-0 (Version None)
Quarter: 2009Q3

REPORT INFORMATION
  Report Type: 
  Country: None (occurrence: None)
  Receive Date: 20090820
  Receipt Date: 20090814
  Transmission Date: 20100115
  Serious: No
  Sender: FDA-Public Use
  Company Number: US-B.I. PHARMACEUTICALS,INC./RIDGEFIELD-2009-BP-09702BP

PATIENT
  Sex: Female
  Weight: 61.36 kg

DRUGS (12)
  1. ZANTAC 150 [Suspect]
     Indication: DYSPEPSIA
     Route: 048
  2. STEROIDS [Concomitant]
     Indication: MIXED CONNECTIVE TISSUE DISEASE
     Dosage: 1
     Dates: start: 20090802
  3. METOPROLOL [Concomitant]
     Indication: HYPERTENSION
  4. PRILOSEC [Concomitant]
     Indication: OESOPHAGEAL DISORDER
     Dates: start: 20030101, end: 20090812
  5. LIPITOR [Concomitant]
     Indication: BLOOD CHOLESTEROL INCREASED
  6. LOVAZA [Concomitant]
     Indication: SUPPLEMENTATION THERAPY
  7. COQIO [Concomitant]
     Indication: SUPPLEMENTATION THERAPY
  8. VITAMINS [Concomitant]
     Indication: SUPPLEMENTATION THERAPY
  9. XANAX [Concomitant]
     Indication: ANXIETY
  10. PLAVIX [Concomitant]
     Indication: BLOOD DISORDER
  11. ASPIRIN [Concomitant]
     Indication: BLOOD DISORDER
  12. PLETAL [Concomitant]
     Indication: BLOOD DISORDER

REACTIONS (1)
  - DRUG INEFFECTIVE [None]
